FAERS Safety Report 5951842-2 (Version None)
Quarter: 2008Q4

REPORT INFORMATION
  Report Type: 
  Country: None (occurrence: None)
  Receive Date: 20081113
  Receipt Date: 20081112
  Transmission Date: 20090506
  Serious: Yes (Other)
  Sender: FDA-Public Use
  Company Number: D0059398A

PATIENT
  Age: 66 Year
  Sex: Male

DRUGS (6)
  1. REQUIP [Suspect]
     Indication: PARKINSON'S DISEASE
     Dosage: 8MG PER DAY
     Route: 048
     Dates: start: 20080101, end: 20080101
  2. CARBIDOPA + LEVODOPA [Suspect]
     Dosage: 100MG PER DAY
     Route: 048
  3. SIFROL [Suspect]
     Dosage: .35MG THREE TIMES PER DAY
     Route: 065
  4. MADOPAR [Concomitant]
     Route: 065
  5. AZILECT [Concomitant]
     Route: 065
  6. REQUIP [Concomitant]
     Route: 048

REACTIONS (3)
  - CONFUSIONAL STATE [None]
  - HALLUCINATION [None]
  - MICTURITION URGENCY [None]
